FAERS Safety Report 10216331 (Version 2)
Quarter: 2014Q2

REPORT INFORMATION
  Report Type: Spontaneous
  Country: US (occurrence: US)
  Receive Date: 20140604
  Receipt Date: 20140616
  Transmission Date: 20141212
  Serious: Yes (Other)
  Sender: FDA-Public Use
  Company Number: US-PFIZER INC-2014149795

PATIENT
  Age: 55 Year
  Sex: Male
  Weight: 92.97 kg

DRUGS (6)
  1. LYRICA [Suspect]
     Indication: DIABETIC NEUROPATHY
     Dosage: 75 MG, 2X/DAY
  2. LANTUS SOLOSTAR [Concomitant]
     Indication: DIABETES MELLITUS
     Dosage: 80 IU AT NIGHT AND 50 IU IN MORNING, 2X/DAY
  3. DILTIAZEM [Concomitant]
     Indication: HYPERTENSION
     Dosage: 40 MG, DAILY
  4. ATORVASTATIN CALCIUM [Concomitant]
     Indication: BLOOD CHOLESTEROL INCREASED
     Dosage: 20 MG, DAILY
  5. PRAMIPEXOLE [Concomitant]
     Dosage: 1MG WITH EVENING MEAL AND 2MG AT BEDTIME, 2X/DAY
  6. JANUMET [Concomitant]
     Indication: DIABETES MELLITUS
     Dosage: 50/1000MG DAILY

REACTIONS (1)
  - Road traffic accident [Unknown]
